FAERS Safety Report 20915327 (Version 1)
Quarter: 2022Q2

REPORT INFORMATION
  Report Type: Spontaneous
  Country: US (occurrence: US)
  Receive Date: 20220604
  Receipt Date: 20220604
  Transmission Date: 20220721
  Serious: No
  Sender: FDA-Public Use
  Company Number: US-SA-SAC20220531000174

PATIENT
  Age: 52 Year
  Sex: Male

DRUGS (3)
  1. DUPIXENT [Suspect]
     Active Substance: DUPILUMAB
     Indication: Asthma
     Dosage: 300 MG, QOW
     Route: 058
     Dates: start: 202109
  2. FASENRA [Concomitant]
     Active Substance: BENRALIZUMAB
  3. VITAMIN B12 [Concomitant]
     Active Substance: CYANOCOBALAMIN

REACTIONS (7)
  - Influenza like illness [Unknown]
  - Myalgia [Unknown]
  - Muscle spasms [Unknown]
  - Vomiting [Unknown]
  - Body temperature abnormal [Unknown]
  - Insomnia [Unknown]
  - Arthralgia [Unknown]
